FAERS Safety Report 4454318-7 (Version None)
Quarter: 2004Q3

REPORT INFORMATION
  Report Type: 
  Country: None (occurrence: None)
  Receive Date: 20040916
  Receipt Date: 20040916
  Transmission Date: 20050211
  Serious: Yes (Hospitalization)
  Sender: FDA-Public Use
  Company Number: None

PATIENT
  Age: 81 Year
  Sex: Male
  Weight: 66.2 kg

DRUGS (8)
  1. TOLMETIN SODIUM [Suspect]
  2. HYDROCHLOROTHIAZIDE [Concomitant]
  3. OMEPRAZOLE [Concomitant]
  4. TERAZOSIN HCL [Concomitant]
  5. NICARDIPINE HCL [Concomitant]
  6. HYDROCHLOROTHIAZIDE [Concomitant]
  7. FINASTERIDE [Concomitant]
  8. RANITIDINE [Concomitant]

REACTIONS (1)
  - DUODENAL ULCER [None]
